FAERS Safety Report 14321932 (Version 2)
Quarter: 2018Q1

REPORT INFORMATION
  Report Type: Report from Study
  Country: IN (occurrence: IN)
  Receive Date: 20171225
  Receipt Date: 20180110
  Transmission Date: 20180509
  Serious: Yes (Other)
  Sender: FDA-Public Use
  Company Number: IN-UCBSA-2017051271

PATIENT
  Sex: Female
  Weight: 35 kg

DRUGS (3)
  1. LEVETIRACETAM. [Suspect]
     Active Substance: LEVETIRACETAM
     Indication: EPILEPSY
     Dosage: 250 MG AM AND 500 MG PM, 2X/DAY (BID)
     Dates: start: 20141117
  2. LEVETIRACETAM. [Suspect]
     Active Substance: LEVETIRACETAM
     Dosage: 250 MG
  3. LEVETIRACETAM. [Suspect]
     Active Substance: LEVETIRACETAM
     Dosage: 500 MG, 2X/DAY (BID)

REACTIONS (1)
  - Epilepsy [Not Recovered/Not Resolved]
